FAERS Safety Report 4764884-X (Version None)
Quarter: 2005Q3

REPORT INFORMATION
  Report Type: 
  Country: None (occurrence: None)
  Receive Date: 20050909
  Receipt Date: 20050906
  Transmission Date: 20060218
  Serious: Yes (Life-Threatening)
  Sender: FDA-Public Use
  Company Number: 2005SE05037

PATIENT
  Age: 38 Year
  Sex: Female

DRUGS (3)
  1. AMIAS 8MG TABLETS [Suspect]
     Indication: HYPERTENSION
     Route: 048
     Dates: start: 20050701, end: 20050802
  2. CARDICOR [Concomitant]
     Indication: HYPERTENSION
     Route: 048
     Dates: start: 20050301
  3. PERINDOPRIL [Concomitant]
     Indication: HYPERTENSION
     Route: 048
     Dates: start: 20050301, end: 20050701

REACTIONS (6)
  - COUGH [None]
  - DYSPHONIA [None]
  - DYSPNOEA [None]
  - GOITRE [None]
  - LOCAL SWELLING [None]
  - SALIVARY HYPERSECRETION [None]
